FAERS Safety Report 7984290-4 (Version None)
Quarter: 2011Q4

REPORT INFORMATION
  Report Type: 
  Country: None (occurrence: None)
  Receive Date: 20111216
  Receipt Date: 20111206
  Transmission Date: 20120403
  Serious: Yes (Disabling, Other)
  Sender: FDA-Public Use
  Company Number: US-JNJFOC-20110810210

PATIENT
  Sex: Female
  Weight: 56.7 kg

DRUGS (5)
  1. CARAFATE [Concomitant]
     Indication: GASTRIC DISORDER
     Route: 048
  2. DEXILANT [Concomitant]
     Indication: GASTRIC DISORDER
     Route: 048
     Dates: start: 20090101
  3. MULTIVITAMINS WITH IRON [Concomitant]
     Indication: MINERAL SUPPLEMENTATION
     Route: 048
  4. REMICADE [Suspect]
     Indication: CROHN'S DISEASE
     Route: 042
     Dates: start: 20090801, end: 20110701
  5. REMICADE [Suspect]
     Route: 042
     Dates: end: 20110801

REACTIONS (3)
  - CYTOMEGALOVIRUS INFECTION [None]
  - ALOPECIA [None]
  - ARTHRITIS [None]
